FAERS Safety Report 6727639-2 (Version None)
Quarter: 2010Q2

REPORT INFORMATION
  Report Type: 
  Country: None (occurrence: None)
  Receive Date: 20100512
  Receipt Date: 20100427
  Transmission Date: 20101027
  Serious: Yes (Disabling)
  Sender: FDA-Public Use
  Company Number: 579886

PATIENT
  Age: 65 Year
  Sex: Female

DRUGS (1)
  1. PACLITAXEL [Suspect]
     Indication: OVARIAN CANCER
     Dates: start: 20100225, end: 20100225

REACTIONS (3)
  - ANAPHYLACTIC REACTION [None]
  - FLUSHING [None]
  - RESPIRATORY FAILURE [None]
